FAERS Safety Report 9919340 (Version 2)
Quarter: 2014Q1

REPORT INFORMATION
  Report Type: Spontaneous
  Country: US (occurrence: US)
  Receive Date: 20140224
  Receipt Date: 20140326
  Transmission Date: 20141002
  Serious: Yes (Congenital Anomaly, Other)
  Sender: FDA-Public Use
  Company Number: US-PFIZER INC-2014049375

PATIENT
  Sex: Female

DRUGS (17)
  1. ZOLOFT [Suspect]
     Dosage: UNK
     Route: 064
     Dates: start: 20040522, end: 20050202
  2. METRONIDAZOLE [Concomitant]
     Dosage: UNK
     Route: 064
  3. ESTROSTEP FE [Concomitant]
     Dosage: UNK
     Route: 064
  4. SULFAMETH/TRIMETHOPRIM [Concomitant]
     Dosage: UNK
     Route: 064
  5. DIAZEPAM [Concomitant]
     Dosage: UNK
     Route: 064
  6. ROBAXIN [Concomitant]
     Dosage: UNK
     Route: 064
  7. PRENATAL VITAMINS [Concomitant]
     Dosage: UNK
     Route: 064
  8. IRON [Concomitant]
     Dosage: UNK
     Route: 064
  9. MAGNESIUM SULFATE [Concomitant]
     Dosage: UNK
     Route: 064
  10. ORTHO TRI CYCLEN 28 [Concomitant]
     Dosage: UNK
     Route: 064
  11. LORAZEPAM [Concomitant]
     Dosage: UNK
     Route: 064
  12. METHOCARBAMOL [Concomitant]
     Dosage: UNK
     Route: 064
  13. NITROFURANTOIN [Concomitant]
     Dosage: UNK
     Route: 064
  14. VALIUM [Concomitant]
     Dosage: UNK
     Route: 064
  15. HYDROCODONE APAP [Concomitant]
     Dosage: UNK
     Route: 064
  16. IBUPROFEN [Concomitant]
     Dosage: UNK
     Route: 064
  17. PENICILLIN [Concomitant]
     Dosage: UNK
     Route: 064

REACTIONS (5)
  - Maternal exposure during pregnancy [Unknown]
  - Auditory neuropathy spectrum disorder [Unknown]
  - Encephalopathy neonatal [Unknown]
  - Hyperbilirubinaemia neonatal [Unknown]
  - Convulsion neonatal [Unknown]
